FAERS Safety Report 4918993-2 (Version None)
Quarter: 2006Q1

REPORT INFORMATION
  Report Type: 
  Country: None (occurrence: None)
  Receive Date: 20060222
  Receipt Date: 20050718
  Transmission Date: 20060701
  Serious: Yes (Hospitalization)
  Sender: FDA-Public Use
  Company Number: US-MERCK-0507USA02878

PATIENT
  Age: 66 Year
  Sex: Male
  Weight: 98 kg

DRUGS (16)
  1. VIOXX [Suspect]
     Indication: ARTHRITIS
     Route: 048
     Dates: start: 20030101, end: 20040401
  2. VIOXX [Suspect]
     Route: 048
     Dates: start: 19990101
  3. ARICEPT [Concomitant]
     Route: 065
  4. THEOPHEN [Concomitant]
     Route: 065
  5. NEXIUM [Concomitant]
     Route: 065
  6. GLUCOTROL [Concomitant]
     Route: 065
  7. UNIPHYL [Concomitant]
     Route: 065
  8. POTASSIUM CHLORIDE [Concomitant]
     Route: 065
  9. NITROQUICK [Concomitant]
     Route: 065
  10. ACTONEL [Concomitant]
     Route: 065
  11. LIPITOR [Concomitant]
     Route: 065
  12. LOTREL [Concomitant]
     Route: 065
  13. ISOSORBIDE [Concomitant]
     Route: 065
  14. FUROSEMIDE [Concomitant]
     Route: 065
  15. DIGOXIN [Concomitant]
     Route: 065
  16. LOMOTIL [Concomitant]
     Route: 065

REACTIONS (5)
  - CARDIAC FAILURE CONGESTIVE [None]
  - CHEST PAIN [None]
  - CORONARY ARTERY DISEASE [None]
  - DIABETES MELLITUS [None]
  - MYOCARDIAL INFARCTION [None]
